FAERS Safety Report 20054764 (Version 1)
Quarter: 2021Q4

REPORT INFORMATION
  Report Type: Spontaneous
  Country: US (occurrence: None)
  Receive Date: 20211110
  Receipt Date: 20211110
  Transmission Date: 20220303
  Serious: Yes (Hospitalization)
  Sender: FDA-Public Use
  Company Number: None

PATIENT
  Sex: Male
  Weight: 93.4 kg

DRUGS (1)
  1. CISPLATIN [Suspect]
     Active Substance: CISPLATIN
     Dates: end: 20211011

REACTIONS (4)
  - Blood creatine increased [None]
  - Creatinine renal clearance decreased [None]
  - Atrial fibrillation [None]
  - Pneumonia aspiration [None]

NARRATIVE: CASE EVENT DATE: 20211030
